FAERS Safety Report 16968930 (Version 1)
Quarter: 2019Q4

REPORT INFORMATION
  Report Type: Spontaneous
  Country: CA (occurrence: CA)
  Receive Date: 20191029
  Receipt Date: 20191029
  Transmission Date: 20200122
  Serious: Yes (Death)
  Sender: FDA-Public Use
  Company Number: CA-TEVA-2019-CA-1126976

PATIENT
  Age: 73 Year
  Sex: Female

DRUGS (7)
  1. DIAZEPAM. [Concomitant]
     Active Substance: DIAZEPAM
  2. AMIODARONE [Suspect]
     Active Substance: AMIODARONE
     Route: 048
  3. OXAZEPAM. [Concomitant]
     Active Substance: OXAZEPAM
  4. HYDROMORPHONE [Concomitant]
     Active Substance: HYDROMORPHONE
  5. TEMAZEPAM. [Concomitant]
     Active Substance: TEMAZEPAM
  6. QUETIAPINE. [Interacting]
     Active Substance: QUETIAPINE
     Route: 048
  7. BISOPROLOL [Concomitant]
     Active Substance: BISOPROLOL

REACTIONS (3)
  - Cardioactive drug level above therapeutic [Fatal]
  - Cardiotoxicity [Fatal]
  - Potentiating drug interaction [Fatal]
